FAERS Safety Report 13123017 (Version 1)
Quarter: 2017Q1

REPORT INFORMATION
  Report Type: Report from Study
  Country: JP (occurrence: JP)
  Receive Date: 20170117
  Receipt Date: 20170117
  Transmission Date: 20170428
  Serious: Yes (Hospitalization, Other)
  Sender: FDA-Public Use
  Company Number: JP-DSJP-DSJ-2016-138798

PATIENT

DRUGS (7)
  1. EDOXABAN [Suspect]
     Active Substance: EDOXABAN TOSYLATE
     Dosage: 30 MG, QD
     Route: 048
     Dates: start: 20161005
  2. ZYLORIC [Concomitant]
     Active Substance: ALLOPURINOL
     Dosage: 100MG/DAY
     Route: 048
  3. TAKEPRON [Concomitant]
     Active Substance: LANSOPRAZOLE
     Dosage: 30MG/DAY
     Route: 048
  4. CONIEL [Concomitant]
     Active Substance: BENIDIPINE HYDROCHLORIDE
     Dosage: 4MG/DAY
     Route: 048
  5. EDOXABAN [Suspect]
     Active Substance: EDOXABAN TOSYLATE
     Indication: ATRIAL FIBRILLATION
     Dosage: 30 MG, QD
     Route: 048
     Dates: start: 20160524, end: 20160919
  6. ELIQUIS [Concomitant]
     Active Substance: APIXABAN
     Dosage: 10MG/DAY
     Route: 048
     Dates: end: 20160523
  7. TENORMIN [Concomitant]
     Active Substance: ATENOLOL
     Dosage: 50MG/DAY
     Route: 048

REACTIONS (2)
  - Anaemia [Recovering/Resolving]
  - Colon cancer [Recovered/Resolved]

NARRATIVE: CASE EVENT DATE: 201607
